FAERS Safety Report 19450241 (Version 1)
Quarter: 2021Q2

REPORT INFORMATION
  Report Type: Report from Study
  Country: US (occurrence: US)
  Receive Date: 20210622
  Receipt Date: 20210622
  Transmission Date: 20210717
  Serious: Yes (Other)
  Sender: FDA-Public Use
  Company Number: US-GILEAD-2021-0532510

PATIENT

DRUGS (7)
  1. IDELALISIB [Suspect]
     Active Substance: IDELALISIB
     Indication: GREY ZONE LYMPHOMA
     Dosage: UNK
     Route: 065
     Dates: start: 20190514, end: 20190522
  2. MOXIFLOXACIN. [Concomitant]
     Active Substance: MOXIFLOXACIN
  3. FOSCARNET [Concomitant]
     Active Substance: FOSCARNET
     Indication: PROCTITIS HERPES
  4. FLUCONAZOLE. [Concomitant]
     Active Substance: FLUCONAZOLE
  5. IVIGLOB EX [Concomitant]
     Active Substance: HUMAN IMMUNOGLOBULIN G
  6. VALTREX [Concomitant]
     Active Substance: VALACYCLOVIR HYDROCHLORIDE
  7. BACTRIM [Concomitant]
     Active Substance: SULFAMETHOXAZOLE\TRIMETHOPRIM

REACTIONS (4)
  - Neutrophil count decreased [Unknown]
  - Graft versus host disease in gastrointestinal tract [Unknown]
  - Graft versus host disease in skin [Unknown]
  - Diarrhoea [Unknown]

NARRATIVE: CASE EVENT DATE: 20190522
